FAERS Safety Report 5098483-X (Version None)
Quarter: 2006Q3

REPORT INFORMATION
  Report Type: 
  Country: None (occurrence: None)
  Receive Date: 20060906
  Receipt Date: 20060131
  Transmission Date: 20061208
  Serious: No
  Sender: FDA-Public Use
  Company Number: US-GLAXOSMITHKLINE-A0591723A

PATIENT
  Sex: Female

DRUGS (15)
  1. REQUIP [Suspect]
     Indication: RESTLESS LEGS SYNDROME
     Dosage: .25MG THREE TIMES PER DAY
     Route: 048
  2. TOPROL-XL [Concomitant]
  3. SYNTHROID [Concomitant]
  4. GLUCOTROL [Concomitant]
  5. GLUCOPHAGE [Concomitant]
  6. XALATAN [Concomitant]
  7. ZOCOR [Concomitant]
  8. ALEVE (CAPLET) [Concomitant]
  9. CALCIUM GLUCONATE [Concomitant]
  10. VITAMINS [Concomitant]
  11. DIAVAN [Concomitant]
  12. ENALAPRIL [Concomitant]
  13. FUROSEMIDE [Concomitant]
  14. AVANDIA [Concomitant]
  15. PRILOSEC [Concomitant]

REACTIONS (1)
  - DRUG INEFFECTIVE [None]
